FAERS Safety Report 5283236-X (Version None)
Quarter: 2007Q2

REPORT INFORMATION
  Report Type: 
  Country: None (occurrence: None)
  Receive Date: 20070402
  Receipt Date: 20070326
  Transmission Date: 20071010
  Serious: Yes (Hospitalization)
  Sender: FDA-Public Use
  Company Number: FR-GLAXOSMITHKLINE-B0464341A

PATIENT
  Age: 47 Year
  Sex: Female

DRUGS (2)
  1. FORTUM [Suspect]
     Dosage: 6G PER DAY
     Route: 042
     Dates: start: 20070121, end: 20070124
  2. METHOTREXATE [Concomitant]
     Dates: start: 20061127, end: 20061127

REACTIONS (5)
  - CONVULSION [None]
  - EAR INFECTION [None]
  - MASTOIDITIS [None]
  - SINUSITIS [None]
  - STATUS EPILEPTICUS [None]
